FAERS Safety Report 10247219 (Version 1)
Quarter: 2014Q2

REPORT INFORMATION
  Report Type: Spontaneous
  Country: US (occurrence: US)
  Receive Date: 20140619
  Receipt Date: 20140619
  Transmission Date: 20141212
  Serious: Yes (Hospitalization)
  Sender: FDA-Public Use
  Company Number: US-GLAXOSMITHKLINE-A1076960A

PATIENT
  Age: 49 Year
  Sex: Female

DRUGS (10)
  1. ADVAIR [Suspect]
     Indication: ASTHMA
     Dosage: 1PUFF TWICE PER DAY
     Route: 055
  2. SULFASALAZINE [Suspect]
     Indication: COLITIS ULCERATIVE
     Dosage: 2TAB TWICE PER DAY
     Route: 065
     Dates: start: 201404, end: 201405
  3. TRAMADOL [Concomitant]
  4. TYLENOL [Concomitant]
  5. AMBIEN [Concomitant]
  6. OMEPRAZOLE [Concomitant]
  7. LIALDA [Concomitant]
  8. ALBUTEROL NEBULIZER [Concomitant]
  9. UNSPECIFIED INHALER [Concomitant]
  10. IPRATROPIUM BROMIDE NEB [Concomitant]

REACTIONS (8)
  - Breast cancer [Unknown]
  - Colitis ulcerative [Unknown]
  - Dyspnoea [Unknown]
  - Chronic obstructive pulmonary disease [Unknown]
  - Drug level increased [Unknown]
  - Nausea [Unknown]
  - Migraine [Unknown]
  - Lung disorder [Unknown]
